FAERS Safety Report 22345793 (Version 1)
Quarter: 2023Q2

REPORT INFORMATION
  Report Type: Spontaneous
  Country: GB (occurrence: None)
  Receive Date: 20230519
  Receipt Date: 20230519
  Transmission Date: 20230722
  Serious: Yes (Other)
  Sender: FDA-Public Use
  Company Number: 2023A115234

PATIENT

DRUGS (3)
  1. QUETIAPINE [Suspect]
     Active Substance: QUETIAPINE
     Indication: Product used for unknown indication
     Dosage: 25MG TWICE A DAY; ;
     Route: 048
     Dates: start: 20230503, end: 20230512
  2. DIAZEPAM [Concomitant]
     Active Substance: DIAZEPAM
  3. PREGABALIN [Concomitant]
     Active Substance: PREGABALIN

REACTIONS (4)
  - Pain in jaw [Recovering/Resolving]
  - Musculoskeletal stiffness [Unknown]
  - Headache [Unknown]
  - Sleep disorder [Unknown]

NARRATIVE: CASE EVENT DATE: 20230503
